FAERS Safety Report 5799171-4 (Version None)
Quarter: 2008Q3

REPORT INFORMATION
  Report Type: 
  Country: None (occurrence: None)
  Receive Date: 20080702
  Receipt Date: 20080624
  Transmission Date: 20090109
  Serious: Yes (Other)
  Sender: FDA-Public Use
  Company Number: US-PFIZER INC-2008034731

PATIENT
  Sex: Male
  Weight: 145.5 kg

DRUGS (17)
  1. CHANTIX [Suspect]
     Indication: SMOKING CESSATION THERAPY
  2. PLAVIX [Concomitant]
  3. GEMFIBROZIL [Concomitant]
  4. NITROGLYCERIN [Concomitant]
  5. SIMVASTATIN [Concomitant]
     Dosage: DAILY DOSE:80MG
  6. LEXAPRO [Concomitant]
  7. IBUPROFEN [Concomitant]
  8. METFORMIN HCL [Concomitant]
  9. ACETYLSALICYLIC ACID SRT [Concomitant]
     Dosage: DAILY DOSE:81MG
  10. AVAPRO [Concomitant]
     Dosage: DAILY DOSE:150MG
  11. HYDROCODONE [Concomitant]
  12. METOPROLOL SUCCINATE [Concomitant]
  13. AMLODIPINE [Concomitant]
     Dosage: DAILY DOSE:5MG
  14. AMITRIPTYLINE HCL [Concomitant]
  15. ALBUTEROL [Concomitant]
  16. INSULIN ASPART/PROTAMINE [Concomitant]
  17. LANTUS [Concomitant]

REACTIONS (3)
  - CEREBRAL INFARCTION [None]
  - HEADACHE [None]
  - VISUAL ACUITY REDUCED [None]
